FAERS Safety Report 19632943 (Version 1)
Quarter: 2021Q3

REPORT INFORMATION
  Report Type: Spontaneous
  Country: PT (occurrence: PT)
  Receive Date: 20210730
  Receipt Date: 20210730
  Transmission Date: 20211014
  Serious: Yes (Hospitalization, Other)
  Sender: FDA-Public Use
  Company Number: PT-AUROBINDO-AUR-APL-2021-032085

PATIENT
  Age: 11 Month
  Sex: Male

DRUGS (1)
  1. AMOXICILLIN+CLAVULANIC ACID [Suspect]
     Active Substance: AMOXICILLIN\CLAVULANIC ACID
     Indication: OTITIS MEDIA ACUTE
     Dosage: UNK (UNKNOWN DOSAGE)
     Route: 065

REACTIONS (4)
  - Rash maculo-papular [Recovered/Resolved]
  - Face oedema [Recovered/Resolved]
  - Urticaria [Recovered/Resolved]
  - Oedema peripheral [Recovered/Resolved]
